FAERS Safety Report 10081636 (Version 1)
Quarter: 2014Q2

REPORT INFORMATION
  Report Type: Spontaneous
  Country: TN (occurrence: TN)
  Receive Date: 20140416
  Receipt Date: 20140416
  Transmission Date: 20141212
  Serious: Yes (Other)
  Sender: FDA-Public Use
  Company Number: TN-ACTAVIS-2014-07129

PATIENT
  Age: 8 Year
  Sex: Female

DRUGS (1)
  1. MINOXIDIL (AMALLC) [Suspect]
     Indication: ALOPECIA AREATA
     Dosage: UNK
     Route: 061

REACTIONS (2)
  - Hypertrichosis [Recovered/Resolved]
  - Off label use [Unknown]
